FAERS Safety Report 25655586 (Version 1)
Quarter: 2025Q3

REPORT INFORMATION
  Report Type: Spontaneous
  Country: US (occurrence: US)
  Receive Date: 20250807
  Receipt Date: 20250807
  Transmission Date: 20251021
  Serious: Yes (Life-Threatening)
  Sender: ELI LILLY AND COMPANY
  Company Number: US-ELI_LILLY_AND_COMPANY-US202508003005

PATIENT
  Sex: Female

DRUGS (1)
  1. EMGALITY [Suspect]
     Active Substance: GALCANEZUMAB-GNLM
     Indication: Migraine
     Route: 058

REACTIONS (1)
  - Anaphylactic reaction [Recovered/Resolved]
